FAERS Safety Report 9709743 (Version 2)
Quarter: 2014Q2

REPORT INFORMATION
  Report Type: Report from Study
  Country: VN (occurrence: VN)
  Receive Date: 20131126
  Receipt Date: 20140602
  Transmission Date: 20141212
  Serious: Yes (Other)
  Sender: FDA-Public Use
  Company Number: VN-ROCHE-1305712

PATIENT
  Sex: 0

DRUGS (5)
  1. RITUXIMAB [Suspect]
     Indication: NON-HODGKIN^S LYMPHOMA
     Dosage: DAY 1 CYCLE/21 DAYS
     Route: 042
  2. CYCLOPHOSPHAMIDE [Suspect]
     Indication: NON-HODGKIN^S LYMPHOMA
     Route: 042
  3. DOXORUBICIN [Suspect]
     Indication: NON-HODGKIN^S LYMPHOMA
     Route: 042
  4. VINCRISTINE [Suspect]
     Indication: NON-HODGKIN^S LYMPHOMA
     Dosage: DAY 1 CYCLE 21 DAYS
     Route: 042
  5. METHYLPREDNISOLONE [Suspect]
     Indication: NON-HODGKIN^S LYMPHOMA
     Dosage: DAY 1,2,3,4,5, CYCLE 21 DAY
     Route: 042

REACTIONS (11)
  - Lung infection [Recovered/Resolved]
  - Cardiac failure [Recovered/Resolved]
  - Neutropenia [Unknown]
  - Fungal infection [Unknown]
  - Viral infection [Unknown]
  - Bacterial infection [Recovered/Resolved]
  - Pyrexia [Unknown]
  - Nausea [Unknown]
  - Vomiting [Unknown]
  - Pruritus [Unknown]
  - Rash [Unknown]
